FAERS Safety Report 8115840-5 (Version None)
Quarter: 2012Q1

REPORT INFORMATION
  Report Type: 
  Country: None (occurrence: None)
  Receive Date: 20120206
  Receipt Date: 20120201
  Transmission Date: 20120608
  Serious: Yes (Hospitalization)
  Sender: FDA-Public Use
  Company Number: MX-B.I. PHARMACEUTICALS,INC./RIDGEFIELD-2012-MX-00036MX

PATIENT
  Sex: Female
  Weight: 78 kg

DRUGS (6)
  1. COMBIVENT [Suspect]
     Indication: CHRONIC OBSTRUCTIVE PULMONARY DISEASE
     Dosage: FORMULATION: INHALANT; DAILY DOSE: 2 PUFF EACH 6 HRS
     Route: 055
     Dates: start: 20120112
  2. PANTOPRAZOLE [Concomitant]
     Indication: GASTRITIS PROPHYLAXIS
     Dosage: 40 MG
     Route: 042
     Dates: start: 20120112, end: 20120127
  3. DABIGATRAN ETEXILATE [Suspect]
     Indication: ATRIAL FIBRILLATION
     Dosage: 220 MG
     Route: 048
     Dates: start: 20110701, end: 20120120
  4. AVELOX [Concomitant]
     Indication: INTERSTITIAL LUNG DISEASE
     Dosage: 400 MG
     Route: 042
     Dates: start: 20120112, end: 20120127
  5. CORDARONE [Concomitant]
     Indication: ATRIAL FIBRILLATION
     Dosage: 200 MG
     Route: 048
     Dates: start: 20110701
  6. FLUTICASONE PROPIONATE/SALMETEROL [Concomitant]
     Indication: CHRONIC OBSTRUCTIVE PULMONARY DISEASE
     Dosage: FORMULATION: MDI; STRENGTH: 25/250MG; DAILY DOSE: 2 PUFF EACH 12HRS
     Route: 055
     Dates: start: 20120123

REACTIONS (2)
  - PULMONARY HAEMORRHAGE [None]
  - PNEUMONIA LEGIONELLA [None]
